FAERS Safety Report 10473711 (Version 1)
Quarter: 2014Q3

REPORT INFORMATION
  Report Type: Spontaneous
  Country: US (occurrence: US)
  Receive Date: 20140924
  Receipt Date: 20140924
  Transmission Date: 20150326
  Serious: Yes (Hospitalization, Other)
  Sender: FDA-Public Use
  Company Number: US-PFIZER INC-2014263182

PATIENT
  Sex: Male

DRUGS (3)
  1. ASPIRIN. [Concomitant]
     Active Substance: ASPIRIN
     Indication: HEADACHE
     Dosage: 70 MG, 1X/DAY (BY TAKING 35MG TWO TABLETS AT A TIME)
  2. IBUPROFEN. [Concomitant]
     Active Substance: IBUPROFEN
     Indication: PERIPHERAL SWELLING
     Dosage: 400 MG, 1X/DAY (BY TAKING 200MG TWO TABLETS AT A TIME)
  3. DILANTIN [Suspect]
     Active Substance: PHENYTOIN
     Indication: CONVULSION
     Dosage: 300 MG, 1X/DAY (BY TAKING 100MG 3 CAPSULES AT A TIME)
     Route: 048
     Dates: end: 2014

REACTIONS (2)
  - Drug ineffective [Unknown]
  - Convulsion [Unknown]

NARRATIVE: CASE EVENT DATE: 2014
